FAERS Safety Report 9867533 (Version 1)
Quarter: 2014Q1

REPORT INFORMATION
  Report Type: Spontaneous
  Country: US (occurrence: US)
  Receive Date: 20140204
  Receipt Date: 20140204
  Transmission Date: 20141002
  Serious: No
  Sender: FDA-Public Use
  Company Number: US-BAYER-2014-017512

PATIENT
  Age: 13 Month
  Sex: Female
  Weight: 9 kg

DRUGS (1)
  1. ALEVE TABLET [Suspect]
     Dosage: 2 DF, ONCE
     Route: 048
     Dates: start: 20140129, end: 20140129

REACTIONS (2)
  - Accidental exposure to product by child [None]
  - Failure of child resistant mechanism for pharmaceutical product [None]
